FAERS Safety Report 18072089 (Version 6)
Quarter: 2021Q4

REPORT INFORMATION
  Report Type: Spontaneous
  Country: US (occurrence: US)
  Receive Date: 20200727
  Receipt Date: 20211013
  Transmission Date: 20220303
  Serious: Yes (Other)
  Sender: FDA-Public Use
  Company Number: US-PFIZER INC-2020284404

PATIENT
  Age: 63 Year
  Sex: Female

DRUGS (1)
  1. LORBRENA [Suspect]
     Active Substance: LORLATINIB
     Dosage: 100 MG, UNK

REACTIONS (7)
  - Renal disorder [Unknown]
  - Depressed mood [Unknown]
  - Dyspnoea [Unknown]
  - Libido decreased [Unknown]
  - Pain in extremity [Unknown]
  - Sleep disorder [Unknown]
  - Hypersomnia [Unknown]

NARRATIVE: CASE EVENT DATE: 20200906
